FAERS Safety Report 6834376-2 (Version None)
Quarter: 2010Q3

REPORT INFORMATION
  Report Type: 
  Country: None (occurrence: None)
  Receive Date: 20100712
  Receipt Date: 20070416
  Transmission Date: 20110219
  Serious: No
  Sender: FDA-Public Use
  Company Number: US-PFIZER INC-2007031824

PATIENT
  Sex: Male
  Weight: 81.818 kg

DRUGS (6)
  1. CHANTIX [Suspect]
     Indication: SMOKING CESSATION THERAPY
     Route: 048
     Dates: start: 20070301
  2. NORVASC [Concomitant]
     Indication: HYPERTENSION
  3. TOPROL-XL [Concomitant]
     Indication: HYPERTENSION
  4. ACIPHEX [Concomitant]
  5. TRICOR [Concomitant]
  6. ZETIA [Concomitant]

REACTIONS (1)
  - RASH [None]
